FAERS Safety Report 7370772-5 (Version None)
Quarter: 2011Q1

REPORT INFORMATION
  Report Type: 
  Country: None (occurrence: None)
  Receive Date: 20110324
  Receipt Date: 20110310
  Transmission Date: 20110831
  Serious: Yes (Other)
  Sender: FDA-Public Use
  Company Number: DE-AMGEN-DEUSP2011009405

PATIENT
  Age: 24 Year
  Sex: Male
  Weight: 73 kg

DRUGS (2)
  1. ENBREL [Suspect]
     Indication: PSORIATIC ARTHROPATHY
     Dosage: 50 MG, WEEKLY
     Dates: start: 20101022, end: 20110208
  2. ENBREL [Suspect]
     Indication: PSORIASIS

REACTIONS (1)
  - HYPERBILIRUBINAEMIA [None]
